FAERS Safety Report 20171627 (Version 2)
Quarter: 2022Q1

REPORT INFORMATION
  Report Type: Report from Study
  Country: US (occurrence: US)
  Receive Date: 20211210
  Receipt Date: 20220122
  Transmission Date: 20220423
  Serious: Yes (Other)
  Sender: FDA-Public Use
  Company Number: US-NOVARTISPH-NVSC2021US278716

PATIENT
  Sex: Female

DRUGS (2)
  1. TABRECTA [Suspect]
     Active Substance: CAPMATINIB
     Indication: Product used for unknown indication
     Dosage: UNK
     Route: 065
  2. TABRECTA [Suspect]
     Active Substance: CAPMATINIB
     Dosage: 2 DOSAGE FORM, (2 TABLETS) QD
     Route: 065

REACTIONS (5)
  - Deafness [Unknown]
  - Chest pain [Unknown]
  - Peripheral swelling [Unknown]
  - Fatigue [Unknown]
  - Cough [Unknown]
